FAERS Safety Report 25034508 (Version 1)
Quarter: 2025Q1

REPORT INFORMATION
  Report Type: Spontaneous
  Country: PT (occurrence: PT)
  Receive Date: 20250304
  Receipt Date: 20250304
  Transmission Date: 20250409
  Serious: Yes (Other)
  Sender: ABBVIE
  Company Number: PT-AMGEN-PRTSP2025036032

PATIENT
  Sex: Female

DRUGS (3)
  1. OZURDEX [Suspect]
     Active Substance: DEXAMETHASONE
     Indication: Product used for unknown indication
     Route: 050
  2. DARATUMUMAB [Suspect]
     Active Substance: DARATUMUMAB
     Indication: Product used for unknown indication
     Route: 065
  3. KYPROLIS [Suspect]
     Active Substance: CARFILZOMIB
     Indication: Product used for unknown indication
     Dosage: 70 MILLIGRAM, QWK (WEEKLY)?DOSAGE1: UNIT=SINGLE DOSE VIAL
     Route: 065

REACTIONS (1)
  - Renal failure [Unknown]
